FAERS Safety Report 9025642 (Version 2)
Quarter: 2013Q2

REPORT INFORMATION
  Report Type: Report from Study
  Country: JP (occurrence: JP)
  Receive Date: 20130123
  Receipt Date: 20130422
  Transmission Date: 20140414
  Serious: Yes (Other)
  Sender: FDA-Public Use
  Company Number: JP-009507513-2012SP029623

PATIENT
  Age: 48 Year
  Sex: Male
  Weight: 69.98 kg

DRUGS (23)
  1. PEGINTRON [Suspect]
     Indication: CHRONIC HEPATITIS C
     Dosage: 1.5 MICROGRAM PER KILOGRAM, QW
     Route: 058
     Dates: start: 20120218
  2. PEGINTRON [Suspect]
     Dosage: 100 MICROGRAM, QW
     Route: 058
     Dates: end: 20120726
  3. REBETOL [Suspect]
     Indication: CHRONIC HEPATITIS C
     Dosage: 800 MG, QD
     Route: 048
     Dates: start: 20120218, end: 20120524
  4. REBETOL [Suspect]
     Dosage: 600 MG, QD
     Route: 048
     Dates: start: 20120525, end: 20120801
  5. TELAVIC [Suspect]
     Indication: CHRONIC HEPATITIS C
     Dosage: 2250 MG, QD
     Route: 048
     Dates: start: 20120218, end: 20120220
  6. TELAVIC [Suspect]
     Dosage: 1500 MG,QD
     Route: 048
     Dates: start: 20120221, end: 20120509
  7. URSO [Concomitant]
     Indication: CHRONIC HEPATITIS C
     Dosage: 600 MG, QD
     Route: 048
     Dates: end: 20120517
  8. BASEN OD [Concomitant]
     Dosage: 0.6 MG, QD
     Route: 048
  9. ACTOS [Concomitant]
     Dosage: 30 MG, QD
     Route: 048
  10. MUCODYNE [Concomitant]
     Indication: BRONCHITIS CHRONIC
     Dosage: 1500 MG,QD
     Route: 048
  11. KIPRES [Concomitant]
     Dosage: 10 MG, QD
     Route: 048
     Dates: start: 20120302
  12. METGLUCO [Concomitant]
     Dosage: 500 MG, QD
     Route: 048
     Dates: start: 20120420
  13. METGLUCO [Concomitant]
     Dosage: 1500 MG,QD
     Route: 048
  14. THEOLONG [Concomitant]
     Dosage: 200 MG, QD
     Route: 048
     Dates: start: 20120424, end: 20120509
  15. RESPLEN [Concomitant]
     Dosage: 60 MG, QD
     Route: 048
     Dates: start: 20120424, end: 20120504
  16. CRAVIT [Concomitant]
     Indication: LYMPHADENITIS
     Dosage: 500 MG, QD
     Route: 048
     Dates: start: 20120426, end: 20120502
  17. SEIBULE [Concomitant]
     Dosage: 150 MG, QD
     Route: 048
  18. SYMBICORT [Concomitant]
     Indication: BRONCHITIS CHRONIC
     Dosage: Q.S./DAY
     Route: 055
  19. ZYLORIC [Concomitant]
     Dosage: 200 MG, QD
     Route: 048
  20. TALION (BEPOTASTINE BESYLATE) [Concomitant]
     Dosage: 20 MG, UNK
     Route: 048
     Dates: start: 20120409
  21. GASMOTIN [Concomitant]
     Dosage: 15 MG, QD
     Route: 048
  22. FEBURIC [Concomitant]
     Dosage: 10 MG, UNK
  23. ANTEBATE [Concomitant]

REACTIONS (3)
  - Renal impairment [Recovering/Resolving]
  - White blood cell count decreased [Recovering/Resolving]
  - Anaemia [Recovered/Resolved]
